FAERS Safety Report 18959120 (Version 1)
Quarter: 2021Q1

REPORT INFORMATION
  Report Type: Other
  Country: US (occurrence: US)
  Receive Date: 20210302
  Receipt Date: 20210302
  Transmission Date: 20210420
  Serious: Yes (Hospitalization, Other)
  Sender: FDA-Public Use
  Company Number: US-ALSI-2021000053

PATIENT
  Age: 19 Year
  Sex: Male

DRUGS (4)
  1. NITROUS OXIDE. [Suspect]
     Active Substance: NITROUS OXIDE
     Indication: PRODUCT USED FOR UNKNOWN INDICATION
  2. METFORMIN [Suspect]
     Active Substance: METFORMIN HYDROCHLORIDE
  3. METOPROLOL. [Concomitant]
     Active Substance: METOPROLOL
  4. SEMAGLUTIDE [Concomitant]
     Active Substance: SEMAGLUTIDE

REACTIONS (7)
  - Neuropathy vitamin B12 deficiency [Unknown]
  - Substance use [Unknown]
  - Muscular weakness [Unknown]
  - Gait inability [Unknown]
  - Decreased vibratory sense [Unknown]
  - Areflexia [Unknown]
  - Exercise tolerance decreased [Unknown]
